FAERS Safety Report 23520260 (Version 1)
Quarter: 2024Q1

REPORT INFORMATION
  Report Type: Spontaneous
  Country: FR (occurrence: FR)
  Receive Date: 20240214
  Receipt Date: 20240214
  Transmission Date: 20240410
  Serious: Yes (Other)
  Sender: FDA-Public Use
  Company Number: None

PATIENT
  Age: 42 Year
  Sex: Male
  Weight: 98 kg

DRUGS (3)
  1. SILDENAFIL [Suspect]
     Active Substance: SILDENAFIL
     Indication: Weight loss diet
     Dosage: 1 SACHET FORX5 LEPIDIUM^LU DETOX?THEN 30 MINUTES LATER 1 SACHET FORX5 COFFEE
     Route: 048
     Dates: start: 20230915
  2. CAFFEINE [Suspect]
     Active Substance: CAFFEINE
     Indication: Weight loss diet
     Dosage: 1 SACHET FORX5 COFFEE / DAY
     Route: 048
     Dates: start: 20230915
  3. SIBUTRAMINE HYDROCHLORIDE MONOHYDRATE [Suspect]
     Active Substance: SIBUTRAMINE HYDROCHLORIDE
     Indication: Weight loss diet
     Dosage: 1 SACHET FORX5 LEPIDIUM^LU DETOX?THEN 30 MINUTES LATER 1 SACHET FORX5 COFFEE
     Route: 048
     Dates: start: 20230915

REACTIONS (9)
  - Early satiety [Recovered/Resolved]
  - Paraesthesia [Recovered/Resolved]
  - Thirst [Recovered/Resolved]
  - Decreased appetite [Recovered/Resolved]
  - Weight decreased [Recovered/Resolved]
  - Infrequent bowel movements [Recovered/Resolved]
  - Nausea [Recovered/Resolved]
  - Asthenia [Recovered/Resolved]
  - Middle insomnia [Recovered/Resolved]

NARRATIVE: CASE EVENT DATE: 20230915
